FAERS Safety Report 12836805 (Version 2)
Quarter: 2016Q4

REPORT INFORMATION
  Report Type: Spontaneous
  Country: DK (occurrence: DK)
  Receive Date: 20161011
  Receipt Date: 20161130
  Transmission Date: 20170207
  Serious: Yes (Hospitalization, Congenital Anomaly)
  Sender: FDA-Public Use
  Company Number: DK-TEVA-2016-00889

PATIENT
  Age: 0 Year
  Sex: Male
  Weight: 3.44 kg

DRUGS (2)
  1. MIRTAZAPIN ACTAVIS [Suspect]
     Active Substance: MIRTAZAPINE
     Indication: HISTRIONIC PERSONALITY DISORDER
     Dosage: 15 MILLIGRAM DAILY;
     Route: 064
  2. CYMBALTA [Suspect]
     Active Substance: DULOXETINE HYDROCHLORIDE
     Indication: HISTRIONIC PERSONALITY DISORDER
     Dosage: 60 MILLIGRAM DAILY; GASTRO-RESISTANT CAPSULE, HARD
     Route: 064
     Dates: start: 20140101

REACTIONS (5)
  - Ventricular septal defect [Not Recovered/Not Resolved]
  - Restlessness [Unknown]
  - Foetal exposure during pregnancy [Recovered/Resolved]
  - Drug withdrawal syndrome neonatal [Unknown]
  - Irritability [Unknown]

NARRATIVE: CASE EVENT DATE: 201601
